FAERS Safety Report 24537006 (Version 2)
Quarter: 2024Q4

REPORT INFORMATION
  Report Type: Spontaneous
  Country: US (occurrence: US)
  Receive Date: 20241022
  Receipt Date: 20241125
  Transmission Date: 20250114
  Serious: No
  Sender: SANOFI AVENTIS
  Company Number: US-SA-2024SA298847

PATIENT
  Age: 51 Year
  Sex: Female

DRUGS (1)
  1. DUPIXENT [Suspect]
     Active Substance: DUPILUMAB
     Indication: Neurodermatitis
     Dosage: 300 MG, QOW
     Route: 058
     Dates: start: 202408

REACTIONS (5)
  - Nail bed infection [Unknown]
  - Nail pitting [Unknown]
  - Onychalgia [Unknown]
  - Neurodermatitis [Unknown]
  - Onycholysis [Unknown]

NARRATIVE: CASE EVENT DATE: 20240101
